FAERS Safety Report 14554537 (Version 1)
Quarter: 2018Q1

REPORT INFORMATION
  Report Type: Spontaneous
  Country: US (occurrence: US)
  Receive Date: 20180218
  Receipt Date: 20180218
  Transmission Date: 20180509
  Serious: Yes (Other)
  Sender: FDA-Public Use
  Company Number: None

PATIENT
  Sex: Female

DRUGS (1)
  1. POLYVITAMIN LIQUID WITH IRON [Suspect]
     Active Substance: IRON\VITAMINS
     Route: 048
     Dates: start: 20161101

REACTIONS (1)
  - Constipation [None]
